FAERS Safety Report 23708144 (Version 1)
Quarter: 2024Q2

REPORT INFORMATION
  Report Type: Spontaneous
  Country: US (occurrence: None)
  Receive Date: 20240402
  Receipt Date: 20240402
  Transmission Date: 20240716
  Serious: Yes (Hospitalization)
  Sender: FDA-Public Use
  Company Number: None

PATIENT
  Sex: Male

DRUGS (1)
  1. HERBALS [Suspect]
     Active Substance: HERBALS

REACTIONS (3)
  - Nausea [None]
  - Pruritus [None]
  - Hyperhidrosis [None]
